FAERS Safety Report 8912499 (Version 1)
Quarter: 2012Q4

REPORT INFORMATION
  Report Type: 
  Country: US (occurrence: US)
  Receive Date: 20121115
  Receipt Date: 20121115
  Transmission Date: 20130627
  Serious: No
  Sender: FDA-Public Use
  Company Number: US-ASTRAZENECA-2012SE83775

PATIENT
  Age: 64 Year
  Sex: Female

DRUGS (1)
  1. SEROQUEL XR [Suspect]
     Indication: BIPOLAR DISORDER
     Route: 048
     Dates: start: 2011, end: 2011

REACTIONS (2)
  - Feeling jittery [Recovered/Resolved]
  - Drug effect decreased [Unknown]
